FAERS Safety Report 4774437-5 (Version None)
Quarter: 2005Q3

REPORT INFORMATION
  Report Type: 
  Country: None (occurrence: None)
  Receive Date: 20050919
  Receipt Date: 20050919
  Transmission Date: 20060218
  Serious: Yes (Hospitalization)
  Sender: FDA-Public Use
  Company Number: None

PATIENT
  Age: 74 Year
  Sex: Male
  Weight: 81.9 kg

DRUGS (4)
  1. ERBITUX 400 MG/M2 X1 250 MG /M2 [Suspect]
     Indication: PANCREATIC CARCINOMA
     Dosage: WEEKLY IV
     Route: 042
     Dates: start: 20050427, end: 20050531
  2. GEMCITABINE 50 MG/M2 [Suspect]
     Indication: PANCREATIC CARCINOMA
     Dosage: 2 X WEEK IV
     Route: 042
     Dates: start: 20050503, end: 20050603
  3. .. [Concomitant]
  4. RADIATION [Concomitant]

REACTIONS (3)
  - DIARRHOEA [None]
  - NAUSEA [None]
  - NEUTROPENIA [None]
